FAERS Safety Report 10421014 (Version 1)
Quarter: 2014Q3

REPORT INFORMATION
  Report Type: Spontaneous
  Country: US (occurrence: None)
  Receive Date: 20140722
  Receipt Date: 20140722
  Transmission Date: 20150326
  Serious: Yes (Other)
  Sender: FDA-Public Use
  Company Number: 163-1000414060992

PATIENT
  Age: 68 Year
  Sex: Female
  Weight: 88.45 kg

DRUGS (7)
  1. CYMBALTA [Concomitant]
     Active Substance: DULOXETINE HYDROCHLORIDE
  2. B 12 (CYANOCOBALAMIN) [Concomitant]
  3. IBUPROFEN. [Concomitant]
     Active Substance: IBUPROFEN
  4. OTEZLA [Suspect]
     Active Substance: APREMILAST
     Indication: PSORIATIC ARTHROPATHY
     Route: 048
     Dates: start: 20140430, end: 20140513
  5. CO-Q 10 (UBIDECARENONE) [Concomitant]
  6. VITAMIN D (ERGOCALCIFEROL) [Concomitant]
     Active Substance: ERGOCALCIFEROL
  7. ATIVAN [Concomitant]
     Active Substance: LORAZEPAM

REACTIONS (1)
  - Diarrhoea [None]
